FAERS Safety Report 7447651-8 (Version None)
Quarter: 2011Q2

REPORT INFORMATION
  Report Type: 
  Country: None (occurrence: None)
  Receive Date: 20110429
  Receipt Date: 20110107
  Transmission Date: 20111010
  Serious: No
  Sender: FDA-Public Use
  Company Number: US-ASTRAZENECA-2011SE01110

PATIENT
  Age: 73 Year
  Sex: Male
  Weight: 73.5 kg

DRUGS (6)
  1. LISINOPRIL [Concomitant]
  2. NEXIUM [Suspect]
     Route: 048
  3. NEXIUM [Suspect]
     Indication: GASTROOESOPHAGEAL REFLUX DISEASE
     Route: 048
     Dates: start: 20010101
  4. SIMVASTATIN [Concomitant]
  5. SYNTHROID [Concomitant]
  6. DYCYCLAMINE [Concomitant]

REACTIONS (1)
  - IRRITABLE BOWEL SYNDROME [None]
